FAERS Safety Report 21822803 (Version 1)
Quarter: 2023Q1

REPORT INFORMATION
  Report Type: Spontaneous
  Country: US (occurrence: US)
  Receive Date: 20230105
  Receipt Date: 20230105
  Transmission Date: 20230417
  Serious: No
  Sender: FDA-Public Use
  Company Number: US-AMNEAL PHARMACEUTICALS-2022-AMRX-03887

PATIENT
  Sex: Female
  Weight: 102.04 kg

DRUGS (1)
  1. ELURYNG [Suspect]
     Active Substance: ETHINYL ESTRADIOL\ETONOGESTREL
     Indication: Contraception
     Dosage: 0.120MG/0.015MG PER DAY
     Route: 067
     Dates: start: 20221110, end: 20221128

REACTIONS (2)
  - Device breakage [Unknown]
  - No adverse event [Unknown]
